FAERS Safety Report 19682910 (Version 5)
Quarter: 2021Q4

REPORT INFORMATION
  Report Type: Report from Study
  Country: None (occurrence: CN)
  Receive Date: 20210810
  Receipt Date: 20211020
  Transmission Date: 20220303
  Serious: Yes (Hospitalization)
  Sender: FDA-Public Use
  Company Number: CN-ABBVIE-21P-035-3857608-00

PATIENT
  Age: 55 Year
  Sex: Male
  Weight: 65 kg

DRUGS (4)
  1. UPADACITINIB [Suspect]
     Active Substance: UPADACITINIB
     Indication: Colitis ulcerative
     Route: 048
     Dates: start: 20200728, end: 20210416
  2. MESALAMINE [Concomitant]
     Active Substance: MESALAMINE
     Indication: Colitis ulcerative
     Route: 048
     Dates: start: 20200617, end: 20210426
  3. MESALAMINE [Concomitant]
     Active Substance: MESALAMINE
     Route: 048
     Dates: start: 20210510
  4. LEUCOGEN [Concomitant]
     Active Substance: LEUCOGEN
     Indication: White blood cell count decreased
     Route: 048
     Dates: start: 20210223, end: 20210331

REACTIONS (1)
  - Pneumonia cryptococcal [Not Recovered/Not Resolved]

NARRATIVE: CASE EVENT DATE: 20210409
